FAERS Safety Report 15330962 (Version 1)
Quarter: 2018Q3

REPORT INFORMATION
  Report Type: Report from Study
  Country: None (occurrence: AT)
  Receive Date: 20180829
  Receipt Date: 20180829
  Transmission Date: 20181010
  Serious: Yes (Death)
  Sender: FDA-Public Use
  Company Number: AT-ABBVIE-18S-009-2465727-00

PATIENT
  Sex: Male

DRUGS (1)
  1. DUODOPA [Suspect]
     Active Substance: CARBIDOPA\LEVODOPA
     Indication: PARKINSON^S DISEASE
     Dosage: 16H THERAPY:??MD: 5.5ML, CR DAYTIME: 1.7ML/H, ED: 7ML
     Route: 050
     Dates: start: 20161018

REACTIONS (2)
  - General physical health deterioration [Fatal]
  - Pneumonia [Fatal]
